FAERS Safety Report 10478913 (Version 4)
Quarter: 2015Q2

REPORT INFORMATION
  Report Type: Spontaneous
  Country: US (occurrence: US)
  Receive Date: 20140926
  Receipt Date: 20150413
  Transmission Date: 20150821
  Serious: Yes (Life-Threatening, Hospitalization)
  Sender: FDA-Public Use
  Company Number: US-BAYER-2014-142254

PATIENT
  Age: 32 Year
  Sex: Female
  Weight: 60.77 kg

DRUGS (1)
  1. MIRENA [Suspect]
     Active Substance: LEVONORGESTREL
     Indication: CONTRACEPTION
     Dosage: 20 MCG/24HR, CONT
     Route: 015
     Dates: start: 20120228, end: 20121026

REACTIONS (6)
  - Injury [None]
  - Abdominal pain [None]
  - Infection [None]
  - Device dislocation [None]
  - Uterine perforation [None]
  - General physical health deterioration [None]

NARRATIVE: CASE EVENT DATE: 20121026
